FAERS Safety Report 4701101-0 (Version None)
Quarter: 2005Q2

REPORT INFORMATION
  Report Type: 
  Country: None (occurrence: None)
  Receive Date: 20050628
  Receipt Date: 20050608
  Transmission Date: 20051028
  Serious: Yes (Hospitalization)
  Sender: FDA-Public Use
  Company Number: GB-BRISTOL-MYERS SQUIBB COMPANY-12997250

PATIENT
  Age: 55 Year
  Sex: Female
  Weight: 82 kg

DRUGS (3)
  1. CISPLATIN [Suspect]
     Indication: ENDOMETRIAL CANCER
     Route: 042
     Dates: start: 20050111, end: 20050111
  2. ADRIAMYCIN PFS [Suspect]
     Indication: ENDOMETRIAL CANCER
     Route: 042
     Dates: start: 20050214, end: 20050214
  3. NYSTATIN [Concomitant]

REACTIONS (1)
  - OEDEMA [None]
